FAERS Safety Report 7810065-2 (Version None)
Quarter: 2011Q4

REPORT INFORMATION
  Report Type: 
  Country: None (occurrence: None)
  Receive Date: 20111006
  Receipt Date: 20110923
  Transmission Date: 20120403
  Serious: Yes (Hospitalization)
  Sender: FDA-Public Use
  Company Number: 1000022316

PATIENT
  Age: 43 Year
  Sex: Female

DRUGS (1)
  1. PROPRANOLOL HYDROCHLORIDE [Suspect]
     Indication: MIGRAINE
     Dosage: 60 MG (60 MG, 1 IN 1 D)
     Dates: end: 20100901

REACTIONS (16)
  - CONGESTIVE CARDIOMYOPATHY [None]
  - PALPITATIONS [None]
  - HYPERHIDROSIS [None]
  - CHEST PAIN [None]
  - TROPONIN I INCREASED [None]
  - NORMETANEPHRINE URINE INCREASED [None]
  - EJECTION FRACTION DECREASED [None]
  - TACHYCARDIA [None]
  - ADRENAL MASS [None]
  - VOMITING [None]
  - NAUSEA [None]
  - HYPOTENSION [None]
  - DYSPNOEA [None]
  - ELECTROCARDIOGRAM T WAVE INVERSION [None]
  - BLOOD PRESSURE INCREASED [None]
  - METANEPHRINE URINE INCREASED [None]
